FAERS Safety Report 10392621 (Version 3)
Quarter: 2014Q3

REPORT INFORMATION
  Report Type: Spontaneous
  Country: JP (occurrence: JP)
  Receive Date: 20140819
  Receipt Date: 20140829
  Transmission Date: 20150326
  Serious: Yes (Hospitalization)
  Sender: FDA-Public Use
  Company Number: JP-ASTELLAS-2014JP014895AA

PATIENT
  Age: 71 Year
  Sex: Male
  Weight: 50 kg

DRUGS (12)
  1. URSO [Concomitant]
     Active Substance: URSODIOL
     Indication: HEPATIC FUNCTION ABNORMAL
     Route: 048
     Dates: start: 20121102
  2. MAGLAX [Concomitant]
     Active Substance: MAGNESIUM OXIDE
     Indication: PROSTATE CANCER
     Dates: start: 20130913
  3. METHYCOBAL [Concomitant]
     Active Substance: METHYLCOBALAMIN
     Indication: PROSTATE CANCER
     Route: 048
     Dates: start: 20140806
  4. SOLANAX [Concomitant]
     Active Substance: ALPRAZOLAM
     Indication: PROSTATE CANCER
     Dosage: 0.4 MG, THRICE DAILY
     Route: 048
     Dates: start: 20140430
  5. MUCOSTA [Concomitant]
     Active Substance: REBAMIPIDE
     Indication: PROSTATE CANCER
     Route: 048
     Dates: start: 20120210
  6. PREDNISOLONE. [Concomitant]
     Active Substance: PREDNISOLONE
     Indication: PROSTATE CANCER
     Route: 048
     Dates: start: 20131101
  7. URIEF [Concomitant]
     Active Substance: SILODOSIN
     Indication: PROSTATE CANCER
     Route: 048
     Dates: start: 20120217
  8. XTANDI [Suspect]
     Active Substance: ENZALUTAMIDE
     Indication: PROSTATE CANCER
     Route: 048
     Dates: start: 20140630, end: 20140715
  9. GASTER [Suspect]
     Active Substance: FAMOTIDINE
     Indication: PROSTATE CANCER
     Route: 048
     Dates: start: 20130913
  10. FENTOS [Concomitant]
     Active Substance: FENTANYL
     Indication: PROSTATE CANCER
     Route: 062
     Dates: start: 20140401
  11. LOXONIN [Concomitant]
     Active Substance: LOXOPROFEN SODIUM
     Indication: PROSTATE CANCER
     Route: 048
     Dates: start: 20120210
  12. XTANDI [Suspect]
     Active Substance: ENZALUTAMIDE
     Route: 048
     Dates: start: 20140716, end: 20140718

REACTIONS (3)
  - Off label use [Unknown]
  - Nausea [Recovered/Resolved]
  - Vomiting [Recovered/Resolved]

NARRATIVE: CASE EVENT DATE: 20130913
